FAERS Safety Report 7488850-9 (Version None)
Quarter: 2011Q2

REPORT INFORMATION
  Report Type: 
  Country: None (occurrence: None)
  Receive Date: 20110518
  Receipt Date: 20110518
  Transmission Date: 20111010
  Serious: Yes (Other)
  Sender: FDA-Public Use
  Company Number: US-JNJFOC-20110502646

PATIENT
  Age: 36 Year
  Sex: Male
  Weight: 77.11 kg

DRUGS (3)
  1. THYROID HORMONES [Concomitant]
     Indication: HYPOTHYROIDISM
     Route: 048
  2. ZYRTEC [Suspect]
     Indication: SLEEP DISORDER THERAPY
     Route: 048
     Dates: start: 20110410, end: 20110502
  3. ZYRTEC [Suspect]
     Indication: MULTIPLE ALLERGIES
     Route: 048
     Dates: start: 20110410, end: 20110502

REACTIONS (8)
  - ABDOMINAL DISCOMFORT [None]
  - DYSPEPSIA [None]
  - BILIARY COLIC [None]
  - FLATULENCE [None]
  - OFF LABEL USE [None]
  - FAECES DISCOLOURED [None]
  - HEPATIC PAIN [None]
  - ASTHENIA [None]
